FAERS Safety Report 8550419 (Version 3)
Quarter: 2013Q2

REPORT INFORMATION
  Report Type: Spontaneous
  Country: US (occurrence: US)
  Receive Date: 20120507
  Receipt Date: 20130417
  Transmission Date: 20140414
  Serious: Yes (Hospitalization, Other)
  Sender: FDA-Public Use
  Company Number: US-RB-039764-12

PATIENT
  Age: 35 Year
  Sex: Female

DRUGS (3)
  1. SUBOXONE FILM [Suspect]
     Indication: DRUG DEPENDENCE
     Route: 060
     Dates: start: 2010, end: 2011
  2. BUPRENORPHINE GENERIC [Suspect]
     Indication: DRUG DEPENDENCE
     Route: 060
     Dates: start: 2011
  3. PROZAC [Suspect]
     Indication: DEPRESSION
     Dosage: UNKNOWN DOSAGE DETAILS
     Route: 048
     Dates: start: 201204

REACTIONS (8)
  - Exposure during pregnancy [Recovered/Resolved]
  - Weight decreased [Unknown]
  - Stillbirth [Recovered/Resolved]
  - Depression [Not Recovered/Not Resolved]
  - Umbilical cord compression [Recovered/Resolved]
  - Foetal hypokinesia [Recovered/Resolved]
  - Caesarean section [None]
  - Pregnancy [None]
